FAERS Safety Report 8273796-9 (Version None)
Quarter: 2012Q2

REPORT INFORMATION
  Report Type: 
  Country: None (occurrence: None)
  Receive Date: 20120411
  Receipt Date: 20120409
  Transmission Date: 20120825
  Serious: Yes (Death)
  Sender: FDA-Public Use
  Company Number: JP-BRACCO-005762

PATIENT
  Sex: Male
  Weight: 45 kg

DRUGS (2)
  1. URSO 250 [Concomitant]
     Dates: start: 20120218, end: 20120310
  2. IOPAMIDOL [Suspect]
     Indication: COMPUTERISED TOMOGRAM
     Dosage: ADMINISTERED AT 15:53 AND INJECTION WAS COMPLETED AT 15:54
     Route: 042
     Dates: start: 20120310, end: 20120310

REACTIONS (2)
  - CARDIO-RESPIRATORY ARREST [None]
  - CARDIAC FAILURE ACUTE [None]
